FAERS Safety Report 4647682-7 (Version None)
Quarter: 2005Q2

REPORT INFORMATION
  Report Type: 
  Country: None (occurrence: None)
  Receive Date: 20050426
  Receipt Date: 20050412
  Transmission Date: 20051028
  Serious: Yes (Hospitalization)
  Sender: FDA-Public Use
  Company Number: CERZ-10866

PATIENT
  Age: 69 Year
  Sex: Female
  Weight: 77.3 kg

DRUGS (1)
  1. CEREZYME [Suspect]
     Indication: GAUCHER'S DISEASE
     Dosage: 46.5 U/KG Q2WKS IV
     Route: 042
     Dates: start: 19971201

REACTIONS (2)
  - CARDIAC ARREST [None]
  - CORONARY ARTERY DISEASE [None]
